FAERS Safety Report 19139987 (Version 1)
Quarter: 2021Q2

REPORT INFORMATION
  Report Type: Spontaneous
  Country: US (occurrence: US)
  Receive Date: 20210415
  Receipt Date: 20210415
  Transmission Date: 20210717
  Serious: No
  Sender: FDA-Public Use
  Company Number: US-DUCHESNAY-2020US000032

PATIENT
  Sex: Female

DRUGS (3)
  1. VITAMINS AND HERBAL SUPPLEMENTS [Concomitant]
  2. OSPHENA [Suspect]
     Active Substance: OSPEMIFENE
     Indication: VULVOVAGINAL DRYNESS
     Dosage: 60 MILLIGRAM, QD
     Route: 048
     Dates: start: 2015
  3. OMEGA 3 [Concomitant]
     Active Substance: OMEGA-3 FATTY ACIDS

REACTIONS (2)
  - Drug withdrawal headache [Recovered/Resolved]
  - Product dose omission issue [Unknown]
